FAERS Safety Report 8366237-4 (Version None)
Quarter: 2012Q2

REPORT INFORMATION
  Report Type: 
  Country: None (occurrence: None)
  Receive Date: 20120517
  Receipt Date: 20120511
  Transmission Date: 20120825
  Serious: Yes (Life-Threatening, Hospitalization)
  Sender: FDA-Public Use
  Company Number: PHHY2012UA040278

PATIENT
  Sex: Male

DRUGS (4)
  1. BERLIPRIL [Concomitant]
     Dosage: 10 MG, BID
  2. SPIRONOLACTONE [Concomitant]
  3. ONBREZ [Suspect]
     Indication: CHRONIC OBSTRUCTIVE PULMONARY DISEASE
     Dosage: 150 UG, UNK
  4. VERAPAMIL [Concomitant]
     Dosage: 40 MG, BID

REACTIONS (4)
  - DYSPNOEA [None]
  - PULMONARY OEDEMA [None]
  - BRONCHOSPASM PARADOXICAL [None]
  - PALPITATIONS [None]
